FAERS Safety Report 7038075-6 (Version None)
Quarter: 2010Q4

REPORT INFORMATION
  Report Type: 
  Country: None (occurrence: None)
  Receive Date: 20101011
  Receipt Date: 20100929
  Transmission Date: 20110411
  Serious: Yes (Other)
  Sender: FDA-Public Use
  Company Number: DE-PFIZER INC-2010123955

PATIENT
  Age: 56 Year
  Sex: Male

DRUGS (3)
  1. LYRICA [Suspect]
     Dosage: 225 MG, 3X/DAY
     Dates: start: 20100101, end: 20100101
  2. LYRICA [Suspect]
     Dosage: 225 MG, 2X/DAY
     Dates: start: 20100101, end: 20100101
  3. LYRICA [Suspect]
     Dosage: 225 MG, 1X/DAY
     Dates: start: 20100101, end: 20100901

REACTIONS (5)
  - DEPRESSION [None]
  - HEADACHE [None]
  - INFLUENZA LIKE ILLNESS [None]
  - NERVOUSNESS [None]
  - WITHDRAWAL SYNDROME [None]
